FAERS Safety Report 4473123-9 (Version None)
Quarter: 2004Q4

REPORT INFORMATION
  Report Type: 
  Country: None (occurrence: None)
  Receive Date: 20041007
  Receipt Date: 20041007
  Transmission Date: 20050328
  Serious: No
  Sender: FDA-Public Use
  Company Number: None

PATIENT
  Age: 57 Year
  Sex: Female
  Weight: 61.6892 kg

DRUGS (4)
  1. ACTOS [Suspect]
     Indication: INSULIN RESISTANCE
     Dosage: 15 MG PO DAILY
     Route: 048
     Dates: start: 20030815, end: 20040812
  2. ZOLOFT [Concomitant]
  3. TOPROL-XL [Concomitant]
  4. KLONEPIN [Concomitant]

REACTIONS (3)
  - ALANINE AMINOTRANSFERASE INCREASED [None]
  - ASPARTATE AMINOTRANSFERASE INCREASED [None]
  - HEPATIC FUNCTION ABNORMAL [None]
